FAERS Safety Report 9199255 (Version 1)
Quarter: 2013Q1

REPORT INFORMATION
  Report Type: Spontaneous
  Country: US (occurrence: US)
  Receive Date: 20130329
  Receipt Date: 20130329
  Transmission Date: 20140127
  Serious: No
  Sender: FDA-Public Use
  Company Number: US-PFIZER INC-2013101197

PATIENT
  Age: 84 Year
  Sex: Male
  Weight: 65.8 kg

DRUGS (11)
  1. LYRICA [Suspect]
     Indication: BACK PAIN
     Dosage: 50 MG, 1X/DAY
     Route: 048
     Dates: start: 20130321, end: 20130323
  2. LYRICA [Suspect]
     Dosage: 100 MG, 1X/DAY
     Route: 048
     Dates: start: 20130324
  3. TRAMADOL [Concomitant]
     Dosage: UNK
  4. METOPROLOL [Concomitant]
     Indication: CARDIAC DISORDER
     Dosage: UNK
  5. CRESTOR [Concomitant]
     Dosage: UNK
  6. REPAN [Concomitant]
     Indication: HEADACHE
     Dosage: UNK
  7. PLAVIX [Concomitant]
     Indication: THROMBOSIS
     Dosage: UNK
  8. FUROSEMIDE [Concomitant]
     Dosage: UNK
  9. FLOMAX [Concomitant]
     Indication: MICTURITION DISORDER
     Dosage: UNK, 1X/DAY
  10. QUININE [Concomitant]
     Dosage: UNK
  11. PANTOPRAZOLE [Concomitant]
     Indication: GASTRIC ULCER
     Dosage: UNK, 1X/DAY

REACTIONS (3)
  - Balance disorder [Unknown]
  - Dizziness [Unknown]
  - Feeling abnormal [Unknown]
